FAERS Safety Report 13668713 (Version 1)
Quarter: 2017Q2

REPORT INFORMATION
  Report Type: Spontaneous
  Country: US (occurrence: US)
  Receive Date: 20170620
  Receipt Date: 20170620
  Transmission Date: 20170830
  Serious: Yes (Life-Threatening, Other)
  Sender: FDA-Public Use
  Company Number: None

PATIENT
  Age: 9 Year
  Sex: Male
  Weight: 30.65 kg

DRUGS (4)
  1. SEROQUEL [Concomitant]
     Active Substance: QUETIAPINE FUMARATE
  2. FOCALIN [Concomitant]
     Active Substance: DEXMETHYLPHENIDATE HYDROCHLORIDE
  3. RISPERDAL [Suspect]
     Active Substance: RISPERIDONE
     Dosage: 1 PILL 2X = 1 AFTERNOON 1 NIGHT MOUTH - SWALLOW PILL
     Route: 048
  4. CLONIDINE. [Concomitant]
     Active Substance: CLONIDINE

REACTIONS (8)
  - Nausea [None]
  - Tongue biting [None]
  - Dysarthria [None]
  - Abdominal pain upper [None]
  - Tremor [None]
  - Fine motor skill dysfunction [None]
  - Trismus [None]
  - Dystonia [None]

NARRATIVE: CASE EVENT DATE: 20170520
